FAERS Safety Report 12497225 (Version 3)
Quarter: 2016Q3

REPORT INFORMATION
  Report Type: Spontaneous
  Country: DE (occurrence: DE)
  Receive Date: 20160624
  Receipt Date: 20160729
  Transmission Date: 20161109
  Serious: Yes (Death, Other)
  Sender: FDA-Public Use
  Company Number: DE-SEATTLE GENETICS-2016SGN01008

PATIENT

DRUGS (2)
  1. KONAKION [Concomitant]
     Active Substance: PHYTONADIONE
     Indication: VITAMIN K DEFICIENCY
     Dosage: UNK
     Route: 042
  2. BRENTUXIMAB VEDOTIN [Suspect]
     Active Substance: BRENTUXIMAB VEDOTIN
     Indication: MYCOSIS FUNGOIDES STAGE IV
     Dosage: UNK
     Route: 042
     Dates: start: 20130729, end: 20130729

REACTIONS (15)
  - Pulmonary embolism [Recovered/Resolved]
  - Vomiting [Recovered/Resolved]
  - Nausea [Unknown]
  - Pancytopenia [Fatal]
  - General physical health deterioration [Unknown]
  - Off label use [Unknown]
  - Enterobacter pneumonia [Recovered/Resolved]
  - Pneumonia pseudomonal [Recovered/Resolved]
  - Vitamin K deficiency [Unknown]
  - Alopecia [Unknown]
  - Infection [Unknown]
  - Staphylococcal sepsis [Recovered/Resolved]
  - Oral candidiasis [Recovered/Resolved]
  - Cystitis [Recovered/Resolved]
  - Device related infection [Recovered/Resolved]

NARRATIVE: CASE EVENT DATE: 2013
